FAERS Safety Report 21294829 (Version 1)
Quarter: 2022Q3

REPORT INFORMATION
  Report Type: Spontaneous
  Country: US (occurrence: US)
  Receive Date: 20220905
  Receipt Date: 20220905
  Transmission Date: 20221026
  Serious: Yes (Life-Threatening)
  Sender: FDA-Public Use
  Company Number: US-drreddys-LIT/USA/22/0154017

PATIENT
  Age: 33 Year
  Sex: Female

DRUGS (6)
  1. MERCAPTOPURINE [Suspect]
     Active Substance: MERCAPTOPURINE
     Indication: Pyoderma gangrenosum
  2. TACROLIMUS [Suspect]
     Active Substance: TACROLIMUS
     Indication: Pyoderma gangrenosum
  3. ADALIMUMAB [Suspect]
     Active Substance: ADALIMUMAB
     Indication: Pyoderma gangrenosum
  4. INFLIXIMAB [Suspect]
     Active Substance: INFLIXIMAB
     Indication: Pyoderma gangrenosum
  5. TRIAMCINOLONE ACETONIDE [Suspect]
     Active Substance: TRIAMCINOLONE ACETONIDE
     Indication: Pyoderma gangrenosum
     Route: 061
  6. VEDOLIZUMAB [Suspect]
     Active Substance: VEDOLIZUMAB
     Indication: Pyoderma gangrenosum

REACTIONS (2)
  - Treatment failure [Unknown]
  - Product use in unapproved indication [Unknown]
